FAERS Safety Report 10410722 (Version 1)
Quarter: 2014Q2

REPORT INFORMATION
  Report Type: Spontaneous
  Country: US (occurrence: None)
  Receive Date: 20140604
  Receipt Date: 20140604
  Transmission Date: 20141212
  Serious: Yes (Other)
  Sender: FDA-Public Use
  Company Number: 20090924CINRY1153

PATIENT
  Age: 43 Year
  Sex: Female

DRUGS (2)
  1. CINRYZE (C1 ESTERASE INHIBITOR (HUMAN)) [Suspect]
     Indication: HEREDITARY ANGIOEDEMA
     Dosage: (1000 UNIT, 3 IN 1 WK)
     Route: 042
     Dates: start: 200810
  2. CINRYZE (C1 ESTERASE INHIBITOR (HUMAN)) [Suspect]
     Indication: PROPHYLAXIS
     Dosage: (1000 UNIT, 3 IN 1 WK)
     Route: 042
     Dates: start: 200810

REACTIONS (3)
  - Hereditary angioedema [None]
  - Angioedema [None]
  - Inappropriate schedule of drug administration [None]
